FAERS Safety Report 8488188 (Version 2)
Quarter: 2013Q1

REPORT INFORMATION
  Report Type: Spontaneous
  Country: US (occurrence: US)
  Receive Date: 20120402
  Receipt Date: 20130304
  Transmission Date: 20140127
  Serious: No
  Sender: FDA-Public Use
  Company Number: US-ABBOTT-10P-163-0801647-00

PATIENT
  Sex: Male
  Weight: 98.52 kg

DRUGS (16)
  1. ANDROGEL 1% [Suspect]
     Indication: BLOOD TESTOSTERONE DECREASED
     Dosage: 5 GM DAILY, ONCE EVERY TWO DAYS
     Dates: start: 200101
  2. ANDROGEL 1% [Suspect]
     Dosage: 7.5 GM DAILY
     Dates: end: 201012
  3. ANDROGEL 1% [Suspect]
     Dosage: 2.5 GM DAILY
     Dates: start: 201012
  4. ANDRODERM [Suspect]
     Indication: PRODUCT USED FOR UNKNOWN INDICATION
     Dosage: DAILY DOSE:  UNKNOWN
     Route: 065
     Dates: start: 200801, end: 200807
  5. ANDROGEL [Suspect]
     Indication: PRODUCT USED FOR UNKNOWN INDICATION
     Dosage: DAILY DOSE:  UNKNOWN
     Route: 065
     Dates: start: 200807, end: 200907
  6. TOPROL [Concomitant]
     Indication: HEART RATE
  7. BENAZEPRIL [Concomitant]
     Indication: BLOOD PRESSURE
  8. KEPPRA [Concomitant]
     Indication: CONVULSION
  9. LEVOTHYROXINE [Concomitant]
     Indication: THYROID DISORDER
  10. ASPIRIN [Concomitant]
     Indication: ANTICOAGULANT THERAPY
  11. PRAVASTIN [Concomitant]
     Indication: PRODUCT USED FOR UNKNOWN INDICATION
  12. METOPLOL [Concomitant]
     Indication: PRODUCT USED FOR UNKNOWN INDICATION
  13. MULTIVITAMIN [Concomitant]
     Indication: PRODUCT USED FOR UNKNOWN INDICATION
  14. VITAMIN B 12 [Concomitant]
     Indication: PRODUCT USED FOR UNKNOWN INDICATION
  15. ZINC [Concomitant]
     Indication: PRODUCT USED FOR UNKNOWN INDICATION
  16. VIAGRA [Concomitant]
     Indication: PRODUCT USED FOR UNKNOWN INDICATION

REACTIONS (3)
  - Gynaecomastia [Not Recovered/Not Resolved]
  - Haematocrit increased [Recovered/Resolved]
  - Blood testosterone abnormal [Recovered/Resolved]
